FAERS Safety Report 7203977-4 (Version None)
Quarter: 2010Q4

REPORT INFORMATION
  Report Type: 
  Country: None (occurrence: None)
  Receive Date: 20101230
  Receipt Date: 20101220
  Transmission Date: 20110411
  Serious: Yes (Hospitalization, Other)
  Sender: FDA-Public Use
  Company Number: FR-ELI_LILLY_AND_COMPANY-FR201011002121

PATIENT
  Age: 34 Year
  Sex: Male
  Weight: 105 kg

DRUGS (9)
  1. ZYPREXA [Suspect]
     Indication: PSYCHOTIC DISORDER
     Dosage: 20 MG, DAILY (1/D)
     Route: 048
     Dates: end: 20101109
  2. SPECIAFOLDINE [Concomitant]
     Route: 048
  3. VALIUM [Concomitant]
     Indication: WITHDRAWAL SYNDROME
     Route: 048
  4. SUBUTEX [Concomitant]
     Indication: DRUG ABUSE
     Dosage: 14 MG, DAILY (1/D)
     Route: 048
  5. AOTAL [Concomitant]
     Route: 048
  6. SYMBICORT [Concomitant]
  7. NICOTINE [Concomitant]
     Route: 062
  8. IMOVANE [Concomitant]
     Indication: WITHDRAWAL SYNDROME
  9. ROHYPNOL [Concomitant]
     Indication: WITHDRAWAL SYNDROME
     Route: 048

REACTIONS (4)
  - DEEP VEIN THROMBOSIS [None]
  - INTERNATIONAL NORMALISED RATIO DECREASED [None]
  - POTENTIATING DRUG INTERACTION [None]
  - PULMONARY EMBOLISM [None]
